FAERS Safety Report 20681181 (Version 1)
Quarter: 2022Q2

REPORT INFORMATION
  Report Type: Spontaneous
  Country: US (occurrence: US)
  Receive Date: 20220406
  Receipt Date: 20220406
  Transmission Date: 20220721
  Serious: No
  Sender: FDA-Public Use
  Company Number: US-SA-SAC20220401001523

PATIENT
  Sex: Female

DRUGS (4)
  1. DUPIXENT [Suspect]
     Active Substance: DUPILUMAB
     Indication: Dermatitis atopic
     Dosage: 300 MG, QOW
     Route: 058
     Dates: start: 20211201
  2. TRIAMCINOLONE ACETONIDE [Concomitant]
     Active Substance: TRIAMCINOLONE ACETONIDE
  3. VANCOMYCIN [Concomitant]
     Active Substance: VANCOMYCIN
  4. NATURE-THROID [Concomitant]
     Active Substance: THYROID, PORCINE

REACTIONS (6)
  - Rash [Unknown]
  - Discomfort [Unknown]
  - Dermatitis atopic [Unknown]
  - Insomnia [Unknown]
  - Injection site swelling [Unknown]
  - Allergic reaction to excipient [Unknown]
